FAERS Safety Report 6688477-2 (Version None)
Quarter: 2010Q2

REPORT INFORMATION
  Report Type: 
  Country: None (occurrence: None)
  Receive Date: 20100413
  Receipt Date: 20100401
  Transmission Date: 20101027
  Serious: Yes (Other)
  Sender: FDA-Public Use
  Company Number: 2010SP018731

PATIENT
  Age: 76 Year
  Sex: Male
  Weight: 58 kg

DRUGS (11)
  1. ROCURONIUM BROMIDE [Suspect]
     Indication: NEUROMUSCULAR BLOCKING THERAPY
     Dosage: SEE IMAGE
     Route: 040
     Dates: start: 20100325, end: 20100325
  2. ROCURONIUM BROMIDE [Suspect]
     Indication: NEUROMUSCULAR BLOCKING THERAPY
     Dosage: SEE IMAGE
     Route: 040
     Dates: start: 20100325, end: 20100325
  3. ROCURONIUM BROMIDE [Suspect]
     Indication: NEUROMUSCULAR BLOCKING THERAPY
     Dosage: SEE IMAGE
     Route: 040
     Dates: start: 20100325, end: 20100325
  4. . [Concomitant]
  5. SEVOFLURANE [Concomitant]
  6. FENTANYL [Concomitant]
  7. DIPRIVAN [Concomitant]
  8. LACTEC [Concomitant]
  9. ALBUMIN (HUMAN) [Concomitant]
  10. RED BLOOD CELLS [Concomitant]
  11. FRESH FROZEN PLASMA [Concomitant]

REACTIONS (5)
  - GASTROINTESTINAL OEDEMA [None]
  - HAEMORRHAGE [None]
  - MUSCLE RIGIDITY [None]
  - OEDEMA [None]
  - THERAPEUTIC RESPONSE DECREASED [None]
